FAERS Safety Report 12223184 (Version 1)
Quarter: 2016Q1

REPORT INFORMATION
  Report Type: Spontaneous
  Country: MY (occurrence: MY)
  Receive Date: 20160330
  Receipt Date: 20160330
  Transmission Date: 20160526
  Serious: Yes (Life-Threatening, Other)
  Sender: FDA-Public Use
  Company Number: MY-WATSON-2016-06438

PATIENT
  Age: 47 Year
  Sex: Female

DRUGS (5)
  1. ETHIONAMIDE [Suspect]
     Active Substance: ETHIONAMIDE
     Indication: TUBERCULOSIS
     Dosage: UNK
     Route: 065
  2. PYRAZINAMIDE. [Suspect]
     Active Substance: PYRAZINAMIDE
     Indication: TUBERCULOSIS
     Dosage: UNK
     Route: 065
  3. CYCLOSERINE. [Suspect]
     Active Substance: CYCLOSERINE
     Indication: TUBERCULOSIS
     Dosage: UNK
     Route: 065
  4. KANAMYCIN [Suspect]
     Active Substance: KANAMYCIN\KANAMYCIN A SULFATE
     Indication: TUBERCULOSIS
     Dosage: UNK
     Route: 065
  5. LEVOFLOXACIN (UNKNOWN) [Suspect]
     Active Substance: LEVOFLOXACIN
     Indication: TUBERCULOSIS
     Dosage: UNK
     Route: 065

REACTIONS (9)
  - Drug resistance [Recovering/Resolving]
  - Vomiting [Recovering/Resolving]
  - Tinnitus [Recovering/Resolving]
  - Arthralgia [Recovering/Resolving]
  - Ototoxicity [Recovering/Resolving]
  - Blindness [Recovering/Resolving]
  - Dizziness [Recovering/Resolving]
  - Deafness [Recovering/Resolving]
  - Nausea [Recovering/Resolving]
